FAERS Safety Report 11711246 (Version 1)
Quarter: 2015Q4

REPORT INFORMATION
  Report Type: Spontaneous
  Country: US (occurrence: US)
  Receive Date: 20151104
  Receipt Date: 20151104
  Transmission Date: 20160304
  Serious: No
  Sender: FDA-Public Use
  Company Number: US-ELI_LILLY_AND_COMPANY-US201105004961

PATIENT
  Age: 56 Year
  Sex: Female

DRUGS (1)
  1. FORTEO [Suspect]
     Active Substance: TERIPARATIDE
     Indication: OSTEOPOROSIS
     Dosage: 20 UG, QD

REACTIONS (10)
  - Appetite disorder [Not Recovered/Not Resolved]
  - Chest pain [Unknown]
  - Muscle spasms [Unknown]
  - Pain in extremity [Recovered/Resolved]
  - Pain in extremity [Unknown]
  - Decreased appetite [Not Recovered/Not Resolved]
  - Dyspepsia [Unknown]
  - Arthralgia [Recovered/Resolved]
  - Arthralgia [Unknown]
  - Bone pain [Unknown]

NARRATIVE: CASE EVENT DATE: 20110511
